FAERS Safety Report 5778080-0 (Version None)
Quarter: 2008Q2

REPORT INFORMATION
  Report Type: 
  Country: None (occurrence: None)
  Receive Date: 20080619
  Receipt Date: 20080612
  Transmission Date: 20081010
  Serious: Yes (Other)
  Sender: FDA-Public Use
  Company Number: US-BAYER-200825604NA

PATIENT
  Age: 37 Year
  Sex: Female
  Weight: 101 kg

DRUGS (1)
  1. MIRENA [Suspect]
     Indication: CONTRACEPTION
     Route: 015
     Dates: start: 20080101

REACTIONS (8)
  - ABDOMINAL PAIN LOWER [None]
  - AMENORRHOEA [None]
  - ARTHRALGIA [None]
  - BACK PAIN [None]
  - DYSPAREUNIA [None]
  - PELVIC PAIN [None]
  - PROCEDURAL PAIN [None]
  - WEIGHT INCREASED [None]
